FAERS Safety Report 6906077-3 (Version None)
Quarter: 2010Q3

REPORT INFORMATION
  Report Type: 
  Country: None (occurrence: None)
  Receive Date: 20100804
  Receipt Date: 20100727
  Transmission Date: 20110219
  Serious: Yes (Death)
  Sender: FDA-Public Use
  Company Number: US-BRACCO-004888

PATIENT
  Sex: Female
  Weight: 68 kg

DRUGS (10)
  1. MULTIHANCE [Suspect]
     Indication: NUCLEAR MAGNETIC RESONANCE IMAGING BRAIN
     Route: 042
     Dates: start: 20100723, end: 20100723
  2. MULTIHANCE [Suspect]
     Indication: HEMIANOPIA
     Route: 042
     Dates: start: 20100723, end: 20100723
  3. CALTRATE [Concomitant]
     Dosage: 600 D+ DAILY
     Route: 048
  4. ZOLOFT [Concomitant]
     Route: 048
  5. ALLEGRA [Concomitant]
     Route: 048
  6. LOVASTATIN [Concomitant]
     Route: 048
  7. PLAVIX [Concomitant]
     Route: 048
  8. EVISTA [Concomitant]
     Route: 048
  9. MULTIVITAMIN [Concomitant]
  10. ALTACE [Concomitant]
     Route: 048

REACTIONS (6)
  - CARDIO-RESPIRATORY ARREST [None]
  - CARDIOGENIC SHOCK [None]
  - CHEST PAIN [None]
  - COLD SWEAT [None]
  - DYSPNOEA [None]
  - HYPOTENSION [None]
